FAERS Safety Report 4478196-5 (Version None)
Quarter: 2004Q4

REPORT INFORMATION
  Report Type: 
  Country: None (occurrence: None)
  Receive Date: 20041014
  Receipt Date: 20040929
  Transmission Date: 20050328
  Serious: Yes (Disabling)
  Sender: FDA-Public Use
  Company Number: 2004GB02337

PATIENT
  Age: 65 Year
  Sex: Male
  Weight: 85 kg

DRUGS (16)
  1. IRESSA [Suspect]
     Indication: PROSTATE CANCER
     Dosage: 250 MG DAILY PO
     Route: 048
     Dates: start: 20040512, end: 20040929
  2. IRESSA [Suspect]
     Indication: PROSTATE CANCER
     Dosage: 250 MG DAILY PO
     Route: 048
     Dates: start: 20041009
  3. ZOLADEX [Suspect]
     Indication: PROSTATE CANCER
     Dosage: 3.6 MG Q4WK SQ
     Route: 058
     Dates: start: 20040517
  4. CASODEX [Suspect]
     Indication: PROSTATE CANCER
     Dosage: 50 MG DAILY PO
     Route: 048
     Dates: start: 20040512
  5. RADIOTHERAPY [Suspect]
     Indication: PROSTATE CANCER
     Dates: start: 20040930, end: 20040930
  6. DIFENE [Suspect]
     Dates: start: 20040924, end: 20040924
  7. TYLEX [Suspect]
     Dates: start: 20040924, end: 20040924
  8. TAMSULOSIN [Concomitant]
  9. ATORVASTATIN CALCIUM [Concomitant]
  10. DOTHIEPIN HYDROCHLORIDE [Concomitant]
  11. ISOSORBIDE MONONITRATE [Concomitant]
  12. SALMETEROL/FLUTICASONE [Concomitant]
  13. TERBUTALINE [Concomitant]
  14. ASPIRIN [Concomitant]
  15. ALPRAZOLAM [Concomitant]
  16. NO MATCH [Suspect]

REACTIONS (4)
  - DRUG INTERACTION [None]
  - DYSPNOEA [None]
  - FALL [None]
  - FATIGUE [None]
